FAERS Safety Report 13740943 (Version 1)
Quarter: 2017Q3

REPORT INFORMATION
  Report Type: Spontaneous
  Country: US (occurrence: US)
  Receive Date: 20170711
  Receipt Date: 20170711
  Transmission Date: 20171127
  Serious: No
  Sender: FDA-Public Use
  Company Number: US-009507513-1706USA005664

PATIENT
  Sex: Female

DRUGS (2)
  1. JANUVIA [Suspect]
     Active Substance: SITAGLIPTIN PHOSPHATE
     Indication: DIABETES MELLITUS
     Dosage: UNK
     Route: 048
     Dates: start: 2013, end: 201703
  2. GLUCOPHAGE [Concomitant]
     Active Substance: METFORMIN HYDROCHLORIDE

REACTIONS (3)
  - Mood altered [Recovered/Resolved]
  - Impatience [Recovered/Resolved]
  - Aggression [Recovered/Resolved]
